FAERS Safety Report 4336244-7 (Version None)
Quarter: 2004Q2

REPORT INFORMATION
  Report Type: 
  Country: None (occurrence: None)
  Receive Date: 20040407
  Receipt Date: 20040318
  Transmission Date: 20050107
  Serious: No
  Sender: FDA-Public Use
  Company Number: JP_040102484

PATIENT
  Age: 62 Year
  Weight: 67 kg

DRUGS (6)
  1. GEMZAR [Suspect]
     Indication: PANCREATIC CARCINOMA
     Dosage: 1000 MG/M2/OTHER
     Dates: start: 20030612, end: 20030626
  2. MS CONTIN [Concomitant]
  3. LOXONIN (LOXOPROFEN SODIUM)' [Concomitant]
  4. MUCOSTA (REBAMIPIDE) [Concomitant]
  5. MAGNESIUM OXIDE [Concomitant]
  6. ALLELOCK (OLOPATADINE HYDROCHLORIDE) [Concomitant]

REACTIONS (3)
  - DRUG ERUPTION [None]
  - MALIGNANT NEOPLASM PROGRESSION [None]
  - PANCREATIC CARCINOMA [None]
